FAERS Safety Report 18559770 (Version 17)
Quarter: 2025Q1

REPORT INFORMATION
  Report Type: Report from Study
  Country: US (occurrence: US)
  Receive Date: 20201130
  Receipt Date: 20250313
  Transmission Date: 20250409
  Serious: Yes (Hospitalization, Other)
  Sender: TAKEDA
  Company Number: US-TAKEDA-2020TUS052719

PATIENT
  Sex: Female
  Weight: 74 kg

DRUGS (39)
  1. HUMAN IMMUNOGLOBULIN G [Suspect]
     Active Substance: HUMAN IMMUNOGLOBULIN G
     Indication: Immunodeficiency common variable
     Dosage: 10 GRAM, 1/WEEK
     Dates: start: 20190406
  2. DIPHENHYDRAMINE [Concomitant]
     Active Substance: DIPHENHYDRAMINE
  3. PREDNISONE [Concomitant]
     Active Substance: PREDNISONE
  4. SYMBICORT [Concomitant]
     Active Substance: BUDESONIDE\FORMOTEROL FUMARATE DIHYDRATE
  5. ALBUTEROL SULFATE [Concomitant]
     Active Substance: ALBUTEROL SULFATE
  6. NASACORT [Concomitant]
     Active Substance: TRIAMCINOLONE ACETONIDE
  7. EPINEPHRINE [Concomitant]
     Active Substance: EPINEPHRINE
  8. ACETAMINOPHEN [Concomitant]
     Active Substance: ACETAMINOPHEN
  9. TRETINOIN [Concomitant]
     Active Substance: TRETINOIN
  10. SINGULAIR [Concomitant]
     Active Substance: MONTELUKAST SODIUM
  11. NOVOLOG [Concomitant]
     Active Substance: INSULIN ASPART
  12. PRAVASTATIN SODIUM [Concomitant]
     Active Substance: PRAVASTATIN SODIUM
  13. LANTUS [Concomitant]
     Active Substance: INSULIN GLARGINE
  14. VICTOZA [Concomitant]
     Active Substance: LIRAGLUTIDE
  15. VITAMIN D3 [Concomitant]
     Active Substance: CHOLECALCIFEROL
  16. FLORAJEN3 [Concomitant]
  17. GLUTATHIONE [Concomitant]
     Active Substance: GLUTATHIONE
  18. MIRALAX [Concomitant]
     Active Substance: POLYETHYLENE GLYCOL 3350
  19. ALLOPURINOL [Concomitant]
     Active Substance: ALLOPURINOL
  20. SUDOGEST [Concomitant]
     Active Substance: PSEUDOEPHEDRINE HYDROCHLORIDE
  21. PLAVIX [Concomitant]
     Active Substance: CLOPIDOGREL BISULFATE
  22. ALPHA LIPOIC ACID [Concomitant]
     Active Substance: .ALPHA.-LIPOIC ACID
  23. OXYCODONE AND ACETAMINOPHEN [Concomitant]
     Active Substance: ACETAMINOPHEN\OXYCODONE HYDROCHLORIDE
  24. FOSAMAX [Concomitant]
     Active Substance: ALENDRONATE SODIUM
  25. OXYGEN [Concomitant]
     Active Substance: OXYGEN
  26. ELIQUIS [Concomitant]
     Active Substance: APIXABAN
  27. POTASSIUM [Concomitant]
     Active Substance: POTASSIUM
  28. MUCINEX [Concomitant]
     Active Substance: GUAIFENESIN
  29. ALBUTEROL SULFATE [Concomitant]
     Active Substance: ALBUTEROL SULFATE
  30. OXYCODONE HYDROCHLORIDE [Concomitant]
     Active Substance: OXYCODONE HYDROCHLORIDE
  31. GARLIC [Concomitant]
     Active Substance: GARLIC
  32. Coq [Concomitant]
  33. LASIX [Concomitant]
     Active Substance: FUROSEMIDE
  34. LIDOCAINE [Concomitant]
     Active Substance: LIDOCAINE
  35. VENTOLIN [Concomitant]
     Active Substance: ALBUTEROL SULFATE
  36. PROTONIX [Concomitant]
     Active Substance: PANTOPRAZOLE SODIUM
  37. DOXYCYCLINE HYCLATE [Concomitant]
     Active Substance: DOXYCYCLINE HYCLATE
  38. PAXLOVID [Concomitant]
     Active Substance: NIRMATRELVIR\RITONAVIR
  39. LANTUS SOLOSTAR [Concomitant]
     Active Substance: INSULIN GLARGINE

REACTIONS (20)
  - Hip fracture [Unknown]
  - Sepsis [Unknown]
  - Colitis [Unknown]
  - Cardiac infection [Unknown]
  - Cardiac failure congestive [Unknown]
  - Atrial fibrillation [Unknown]
  - Food poisoning [Unknown]
  - Sinusitis [Unknown]
  - Arthropod bite [Unknown]
  - Infected bite [Unknown]
  - Illness [Unknown]
  - Respiratory tract infection [Unknown]
  - Bronchitis [Unknown]
  - Urinary tract infection [Unknown]
  - Pleural effusion [Unknown]
  - Upper respiratory tract infection [Unknown]
  - Asthma [Unknown]
  - Swelling [Unknown]
  - Decreased appetite [Unknown]
  - Nausea [Unknown]
